FAERS Safety Report 13794240 (Version 1)
Quarter: 2017Q3

REPORT INFORMATION
  Report Type: Spontaneous
  Country: US (occurrence: US)
  Receive Date: 20170726
  Receipt Date: 20170726
  Transmission Date: 20171127
  Serious: Yes (Hospitalization)
  Sender: FDA-Public Use
  Company Number: None

PATIENT
  Age: 62 Year
  Sex: Male
  Weight: 77.3 kg

DRUGS (3)
  1. LENALIDOMIDE (CC-5013) [Suspect]
     Active Substance: LENALIDOMIDE
     Dates: end: 20170109
  2. VELCADE [Suspect]
     Active Substance: BORTEZOMIB
     Dates: end: 20170106
  3. DEXAMETHASONE. [Suspect]
     Active Substance: DEXAMETHASONE
     Dates: end: 20170107

REACTIONS (3)
  - Abscess oral [None]
  - Metapneumovirus infection [None]
  - Sepsis [None]

NARRATIVE: CASE EVENT DATE: 20170201
